FAERS Safety Report 8235269-9 (Version None)
Quarter: 2012Q1

REPORT INFORMATION
  Report Type: 
  Country: None (occurrence: None)
  Receive Date: 20120326
  Receipt Date: 20120316
  Transmission Date: 20120608
  Serious: Yes (Hospitalization, Other)
  Sender: FDA-Public Use
  Company Number: US-BRISTOL-MYERS SQUIBB COMPANY-16465510

PATIENT
  Age: 1 Decade
  Sex: Female

DRUGS (4)
  1. ACARBOSE [Suspect]
     Indication: DIABETES MELLITUS
  2. INSULIN [Suspect]
     Indication: DIABETES MELLITUS
     Dosage: UPTO 320 UNITS 40 UNITS
  3. METFORMIN HCL [Suspect]
     Indication: DIABETES MELLITUS
  4. PIOGLITAZONE HCL [Suspect]
     Indication: DIABETES MELLITUS

REACTIONS (3)
  - PANCREATITIS ACUTE [None]
  - BLOOD TRIGLYCERIDES INCREASED [None]
  - DIABETES MELLITUS INADEQUATE CONTROL [None]
